FAERS Safety Report 16863105 (Version 1)
Quarter: 2019Q3

REPORT INFORMATION
  Report Type: Spontaneous
  Country: FR (occurrence: FR)
  Receive Date: 20190927
  Receipt Date: 20190927
  Transmission Date: 20191005
  Serious: Yes (Other)
  Sender: FDA-Public Use
  Company Number: FR-FRESENIUS KABI-FK201910646

PATIENT
  Age: 65 Year
  Sex: Male

DRUGS (2)
  1. GENTAMICIN (MANUFACTURER UNKNOWN) [Suspect]
     Active Substance: GENTAMICIN
     Indication: ENDOPHTHALMITIS
     Dosage: 200 UG/0,1 ML
     Route: 050
  2. VANCOMYCIN [Concomitant]
     Active Substance: VANCOMYCIN
     Indication: ENDOPHTHALMITIS
     Dosage: 1 MG/0,1 ML
     Route: 050

REACTIONS (1)
  - Infarction [Unknown]
